FAERS Safety Report 12731085 (Version 2)
Quarter: 2016Q4

REPORT INFORMATION
  Report Type: Spontaneous
  Country: US (occurrence: US)
  Receive Date: 20160911
  Receipt Date: 20161227
  Transmission Date: 20170207
  Serious: No
  Sender: FDA-Public Use
  Company Number: US-TEVA-679899USA

PATIENT
  Sex: Female

DRUGS (4)
  1. VENTOLIN [Concomitant]
     Active Substance: ALBUTEROL SULFATE
     Dosage: 2 PUFFS TWICE DAILY
  2. PREDNISON [Concomitant]
     Active Substance: PREDNISONE
     Dosage: 10 MILLIGRAM DAILY;
  3. QVAR [Suspect]
     Active Substance: BECLOMETHASONE DIPROPIONATE
     Indication: ASTHMA
     Dosage: 2 PUFFS TWICE DAILY
     Dates: start: 20160518, end: 20160523
  4. LISINOPRIL. [Concomitant]
     Active Substance: LISINOPRIL

REACTIONS (10)
  - Throat irritation [Not Recovered/Not Resolved]
  - Nausea [Not Recovered/Not Resolved]
  - Wheezing [Not Recovered/Not Resolved]
  - Pharyngitis streptococcal [Not Recovered/Not Resolved]
  - Headache [Not Recovered/Not Resolved]
  - Cough [Not Recovered/Not Resolved]
  - Sinusitis [Not Recovered/Not Resolved]
  - Hypertension [Not Recovered/Not Resolved]
  - Vision blurred [Not Recovered/Not Resolved]
  - Drug hypersensitivity [Not Recovered/Not Resolved]

NARRATIVE: CASE EVENT DATE: 2016
